FAERS Safety Report 24640884 (Version 2)
Quarter: 2025Q4

REPORT INFORMATION
  Report Type: Spontaneous
  Country: US (occurrence: US)
  Receive Date: 20241120
  Receipt Date: 20251020
  Transmission Date: 20260118
  Serious: No
  Sender: LEO PHARM
  Company Number: US-LEO Pharma-375167

PATIENT
  Age: 96 Year
  Sex: Female

DRUGS (1)
  1. ADBRY [Suspect]
     Active Substance: TRALOKINUMAB-LDRM
     Indication: Dermatitis atopic
     Dosage: TREATMENT IS ONGOING
     Dates: start: 202204

REACTIONS (7)
  - Dermatitis atopic [Unknown]
  - Stress [Unknown]
  - Dry eye [Unknown]
  - Constipation [Unknown]
  - Alopecia [Unknown]
  - Dry skin [Unknown]
  - Feeling abnormal [Unknown]
